FAERS Safety Report 9940155 (Version 2)
Quarter: 2014Q1

REPORT INFORMATION
  Report Type: Report from Study
  Country: US (occurrence: US)
  Receive Date: 20140303
  Receipt Date: 20140303
  Transmission Date: 20141002
  Serious: No
  Sender: FDA-Public Use
  Company Number: US-ABBVIE-13P-163-1036338-00

PATIENT
  Age: 37 Year
  Sex: Female

DRUGS (2)
  1. HUMIRA [Suspect]
     Indication: ANKYLOSING SPONDYLITIS
     Route: 058
     Dates: start: 20130108
  2. CELEBREX [Concomitant]
     Indication: PAIN

REACTIONS (3)
  - Injection site bruising [Recovering/Resolving]
  - Drug ineffective [Unknown]
  - Back pain [Unknown]
